FAERS Safety Report 21257450 (Version 1)
Quarter: 2022Q3

REPORT INFORMATION
  Report Type: Spontaneous
  Country: US (occurrence: US)
  Receive Date: 20220826
  Receipt Date: 20220826
  Transmission Date: 20221027
  Serious: Yes (Other)
  Sender: FDA-Public Use
  Company Number: US-CELLTRION INC.-2022US013719

PATIENT

DRUGS (2)
  1. TRUXIMA [Suspect]
     Active Substance: RITUXIMAB-ABBS
     Indication: Polyarteritis nodosa
     Dosage: 1000 MILLIGRAM, Q16WEEKS
     Dates: start: 20220110
  2. TRUXIMA [Suspect]
     Active Substance: RITUXIMAB-ABBS
     Dosage: 1000 MILLIGRAM, Q16WEEKS
     Dates: start: 20220425

REACTIONS (2)
  - Polyarteritis nodosa [Unknown]
  - Off label use [Unknown]
